FAERS Safety Report 9443592 (Version 1)
Quarter: 2013Q3

REPORT INFORMATION
  Report Type: Spontaneous
  Country: None (occurrence: None)
  Receive Date: 20130802
  Receipt Date: 20130802
  Transmission Date: 20140515
  Serious: Yes (Other)
  Sender: FDA-Public Use
  Company Number: ES-ALSI-201300197

PATIENT
  Age: 65 Year
  Sex: 0
  Weight: 92 kg

DRUGS (4)
  1. CARBON DIOXIDE [Suspect]
     Indication: LAPAROSCOPIC SURGERY
     Route: 033
  2. (METOCLOPRAMIDE) [Concomitant]
  3. (ONDANSETRON) [Concomitant]
  4. (DEXAMETHASONE) [Concomitant]

REACTIONS (3)
  - Pneumomediastinum [None]
  - Post procedural complication [None]
  - Subcutaneous emphysema [None]
